FAERS Safety Report 5543431-9 (Version None)
Quarter: 2007Q4

REPORT INFORMATION
  Report Type: 
  Country: None (occurrence: None)
  Receive Date: 20071206
  Receipt Date: 20071128
  Transmission Date: 20080405
  Serious: Yes (Hospitalization)
  Sender: FDA-Public Use
  Company Number: 230729J07USA

PATIENT
  Age: 72 Year
  Sex: Female
  Weight: 113.3993 kg

DRUGS (8)
  1. REBIF [Suspect]
     Indication: MULTIPLE SCLEROSIS
     Dosage: 44 MCG, 3 IN 1 WEEKS, SUBCUTANEOUS
     Route: 058
     Dates: start: 20070827, end: 20071001
  2. REBIF [Suspect]
     Indication: MULTIPLE SCLEROSIS
     Dosage: 44 MCG, 3 IN 1 WEEKS, SUBCUTANEOUS
     Route: 058
     Dates: start: 20071001, end: 20071116
  3. ZOCOR (ZOCOR CARDIO ASS) [Concomitant]
  4. PROTONIX [Concomitant]
  5. ALLEGRA (FEXOFENADINE HYDROCHLORIDE) [Concomitant]
  6. BACLOFEN [Concomitant]
  7. ASPIRIN [Concomitant]
  8. DIOVAN [Concomitant]

REACTIONS (9)
  - ASTHENIA [None]
  - BLOOD ELECTROLYTES DECREASED [None]
  - BODY TEMPERATURE INCREASED [None]
  - FATIGUE [None]
  - INSOMNIA [None]
  - MYALGIA [None]
  - NO THERAPEUTIC RESPONSE [None]
  - SPINAL OSTEOARTHRITIS [None]
  - URINARY RETENTION [None]
